FAERS Safety Report 13182613 (Version 2)
Quarter: 2017Q1

REPORT INFORMATION
  Report Type: Spontaneous
  Country: US (occurrence: US)
  Receive Date: 20170203
  Receipt Date: 20170206
  Transmission Date: 20170428
  Serious: No
  Sender: FDA-Public Use
  Company Number: US-PFIZER INC-2017044728

PATIENT

DRUGS (2)
  1. ALFUZOSIN HYDROCHLORIDE. [Interacting]
     Active Substance: ALFUZOSIN HYDROCHLORIDE
  2. VIAGRA [Suspect]
     Active Substance: SILDENAFIL CITRATE

REACTIONS (2)
  - Drug interaction [Unknown]
  - Blood pressure decreased [Unknown]
